FAERS Safety Report 21461724 (Version 1)
Quarter: 2022Q4

REPORT INFORMATION
  Report Type: Spontaneous
  Country: FR (occurrence: FR)
  Receive Date: 20221015
  Receipt Date: 20221015
  Transmission Date: 20230112
  Serious: Yes (Death)
  Sender: FDA-Public Use
  Company Number: None

PATIENT
  Age: 59 Year
  Sex: Female

DRUGS (2)
  1. AMITRIPTYLINE [Suspect]
     Active Substance: AMITRIPTYLINE
     Indication: Mental disorder
  2. BROMAZEPAM [Suspect]
     Active Substance: BROMAZEPAM
     Indication: Mental disorder

REACTIONS (2)
  - Respiratory distress [Fatal]
  - Asphyxia [Fatal]

NARRATIVE: CASE EVENT DATE: 20200101
